FAERS Safety Report 4801552-X (Version None)
Quarter: 2005Q4

REPORT INFORMATION
  Report Type: 
  Country: None (occurrence: None)
  Receive Date: 20051011
  Receipt Date: 20051011
  Transmission Date: 20060501
  Serious: No
  Sender: FDA-Public Use
  Company Number: None

PATIENT
  Age: 44 Year
  Sex: Male
  Weight: 76.2043 kg

DRUGS (3)
  1. LOTENSIN [Suspect]
     Indication: HYPERCHOLESTEROLAEMIA
     Dosage: 20 MG PO ONE DAILY
     Route: 048
     Dates: start: 20050825
  2. ZOCOR [Suspect]
     Indication: HYPERTENSION
     Dosage: 20 MG PO ONE DAILY
     Route: 048
     Dates: start: 20050926
  3. BENAZEPRIL HCL [Suspect]

REACTIONS (3)
  - DRUG HYPERSENSITIVITY [None]
  - PRURITUS [None]
  - URTICARIA [None]
